FAERS Safety Report 25277126 (Version 1)
Quarter: 2025Q2

REPORT INFORMATION
  Report Type: Spontaneous
  Country: TN (occurrence: TN)
  Receive Date: 20250507
  Receipt Date: 20250507
  Transmission Date: 20250717
  Serious: Yes (Life-Threatening, Hospitalization)
  Sender: ACCORD
  Company Number: TN-MLMSERVICE-20250422-PI484464-00218-2

PATIENT
  Age: 8 Year
  Sex: Male

DRUGS (25)
  1. METHOTREXATE [Suspect]
     Active Substance: METHOTREXATE
     Indication: Burkitt^s lymphoma stage IV
  2. ADRIAMYCIN [Suspect]
     Active Substance: DOXORUBICIN HYDROCHLORIDE
     Indication: Burkitt^s lymphoma stage IV
  3. CYCLOPHOSPHAMIDE [Suspect]
     Active Substance: CYCLOPHOSPHAMIDE
     Indication: Burkitt^s lymphoma stage IV
  4. VINCRISTINE [Suspect]
     Active Substance: VINCRISTINE
     Indication: Burkitt^s lymphoma stage IV
  5. PREDNISOLONE [Suspect]
     Active Substance: PREDNISOLONE
     Indication: Burkitt^s lymphoma stage IV
  6. PREDNISOLONE [Suspect]
     Active Substance: PREDNISOLONE
     Indication: Nasopharyngeal cancer stage IV
  7. ADRIAMYCIN [Suspect]
     Active Substance: DOXORUBICIN HYDROCHLORIDE
     Indication: Nasopharyngeal cancer stage IV
  8. METHOTREXATE [Suspect]
     Active Substance: METHOTREXATE
     Indication: Nasopharyngeal cancer stage IV
  9. METHOTREXATE [Suspect]
     Active Substance: METHOTREXATE
     Indication: Metastases to bone
  10. METHOTREXATE [Suspect]
     Active Substance: METHOTREXATE
     Indication: Metastases to eye
  11. METHOTREXATE [Suspect]
     Active Substance: METHOTREXATE
     Indication: Metastases to mouth
  12. ADRIAMYCIN [Suspect]
     Active Substance: DOXORUBICIN HYDROCHLORIDE
     Indication: Metastases to bone
  13. ADRIAMYCIN [Suspect]
     Active Substance: DOXORUBICIN HYDROCHLORIDE
     Indication: Metastases to eye
  14. ADRIAMYCIN [Suspect]
     Active Substance: DOXORUBICIN HYDROCHLORIDE
     Indication: Metastases to mouth
  15. CYCLOPHOSPHAMIDE [Suspect]
     Active Substance: CYCLOPHOSPHAMIDE
     Indication: Metastases to bone
  16. CYCLOPHOSPHAMIDE [Suspect]
     Active Substance: CYCLOPHOSPHAMIDE
     Indication: Metastases to eye
  17. CYCLOPHOSPHAMIDE [Suspect]
     Active Substance: CYCLOPHOSPHAMIDE
     Indication: Metastases to mouth
  18. VINCRISTINE [Suspect]
     Active Substance: VINCRISTINE
     Indication: Metastases to bone
  19. VINCRISTINE [Suspect]
     Active Substance: VINCRISTINE
     Indication: Metastases to eye
  20. VINCRISTINE [Suspect]
     Active Substance: VINCRISTINE
     Indication: Metastases to mouth
  21. PREDNISOLONE [Suspect]
     Active Substance: PREDNISOLONE
     Indication: Metastases to bone
  22. PREDNISOLONE [Suspect]
     Active Substance: PREDNISOLONE
     Indication: Metastases to eye
  23. PREDNISOLONE [Suspect]
     Active Substance: PREDNISOLONE
     Indication: Metastases to mouth
  24. CYCLOPHOSPHAMIDE [Suspect]
     Active Substance: CYCLOPHOSPHAMIDE
     Indication: Nasopharyngeal cancer stage IV
  25. VINCRISTINE [Suspect]
     Active Substance: VINCRISTINE
     Indication: Nasopharyngeal cancer stage IV

REACTIONS (2)
  - Posterior reversible encephalopathy syndrome [Unknown]
  - Coma [Recovered/Resolved]
